FAERS Safety Report 4970266-8 (Version None)
Quarter: 2006Q2

REPORT INFORMATION
  Report Type: 
  Country: None (occurrence: None)
  Receive Date: 20060406
  Receipt Date: 20060329
  Transmission Date: 20061013
  Serious: Yes (Other)
  Sender: FDA-Public Use
  Company Number: DEWYE517930MAR06

PATIENT
  Sex: Male

DRUGS (13)
  1. RAPAMUNE [Suspect]
     Indication: PROPHYLAXIS AGAINST TRANSPLANT REJECTION
     Dosage: SEE IMAGE
     Dates: start: 20041119, end: 20041221
  2. RAPAMUNE [Suspect]
     Indication: PROPHYLAXIS AGAINST TRANSPLANT REJECTION
     Dosage: SEE IMAGE
     Dates: start: 20041222
  3. CELLCEPT [Suspect]
     Indication: PROPHYLAXIS AGAINST TRANSPLANT REJECTION
     Dosage: SEE IMAGE
     Dates: start: 20040927, end: 20041118
  4. CELLCEPT [Suspect]
     Indication: PROPHYLAXIS AGAINST TRANSPLANT REJECTION
     Dosage: SEE IMAGE
     Dates: start: 20041119
  5. DECORTIN (PREDNISONE, , 0) [Suspect]
     Indication: PROPHYLAXIS AGAINST TRANSPLANT REJECTION
     Dosage: 5 MG
     Dates: start: 20040908
  6. LASIX [Concomitant]
  7. METOPROLOL SUCCINATE [Concomitant]
  8. REPAGLINIDE [Concomitant]
  9. ATORVASTATIN CALCIUM [Concomitant]
  10. ASPIRIN [Concomitant]
  11. MARCUMAR [Concomitant]
  12. OMEPRAZOLE [Concomitant]
  13. NEURONTIN [Concomitant]

REACTIONS (1)
  - INTERMITTENT CLAUDICATION [None]
